FAERS Safety Report 24242341 (Version 1)
Quarter: 2024Q3

REPORT INFORMATION
  Report Type: Spontaneous
  Country: CA (occurrence: CA)
  Receive Date: 20240823
  Receipt Date: 20240823
  Transmission Date: 20241016
  Serious: Yes (Hospitalization)
  Sender: SANDOZ
  Company Number: CA-002147023-NVSC2024CA169089

PATIENT
  Age: 79 Year
  Sex: Male
  Weight: 75 kg

DRUGS (1)
  1. ZOLEDRONIC ACID [Suspect]
     Active Substance: ZOLEDRONIC ACID
     Indication: Osteoporosis
     Dosage: 5 MG, Q12MO (1 EVERY 1 YEARS)
     Route: 042

REACTIONS (8)
  - Acute kidney injury [Recovered/Resolved]
  - Altered state of consciousness [Recovered/Resolved]
  - Bladder dilatation [Recovered/Resolved]
  - Hypernatraemia [Recovered/Resolved]
  - Urinary retention [Recovered/Resolved]
  - White blood cell count increased [Recovered/Resolved]
  - Seizure [Recovered/Resolved]
  - Pyrexia [Recovered/Resolved]
